FAERS Safety Report 8110137-1 (Version None)
Quarter: 2012Q1

REPORT INFORMATION
  Report Type: 
  Country: None (occurrence: None)
  Receive Date: 20120202
  Receipt Date: 20120124
  Transmission Date: 20120608
  Serious: No
  Sender: FDA-Public Use
  Company Number: US-AMGEN-USASP2012005216

PATIENT
  Age: 42 Year
  Sex: Female

DRUGS (1)
  1. ENBREL [Suspect]
     Indication: PSORIASIS
     Dosage: 50 MG, 2 TIMES/WK
     Dates: start: 20101128

REACTIONS (8)
  - NASAL CONGESTION [None]
  - PYREXIA [None]
  - INJECTION SITE PAIN [None]
  - HEADACHE [None]
  - COUGH [None]
  - PAIN [None]
  - PSORIASIS [None]
  - WEIGHT INCREASED [None]
